FAERS Safety Report 13832842 (Version 1)
Quarter: 2017Q3

REPORT INFORMATION
  Report Type: Spontaneous
  Country: US (occurrence: US)
  Receive Date: 20170804
  Receipt Date: 20170804
  Transmission Date: 20171127
  Serious: No
  Sender: FDA-Public Use
  Company Number: US-PFIZER INC-2017336308

PATIENT
  Age: 29 Year
  Sex: Male

DRUGS (3)
  1. MAGNESIUM [Concomitant]
     Active Substance: MAGNESIUM
     Indication: SERUM SEROTONIN DECREASED
     Dosage: 1 DF, DAILY (1 WHITE DISSOLVABLE PILL A DAY)
  2. LYRICA [Suspect]
     Active Substance: PREGABALIN
     Indication: TRIGEMINAL NERVE DISORDER
     Dosage: 200 MG, 3X/DAY
     Route: 048
     Dates: start: 2017, end: 201707
  3. LYRICA [Suspect]
     Active Substance: PREGABALIN
     Indication: NEURALGIA

REACTIONS (2)
  - Headache [Not Recovered/Not Resolved]
  - Migraine [Not Recovered/Not Resolved]

NARRATIVE: CASE EVENT DATE: 201707
